FAERS Safety Report 4691789-5 (Version None)
Quarter: 2005Q2

REPORT INFORMATION
  Report Type: 
  Country: None (occurrence: None)
  Receive Date: 20050616
  Receipt Date: 20050613
  Transmission Date: 20051028
  Serious: Yes (Life-Threatening, Other)
  Sender: FDA-Public Use
  Company Number: JP-BRISTOL-MYERS SQUIBB COMPANY-13003942

PATIENT
  Age: 75 Year
  Sex: Male

DRUGS (6)
  1. PARAPLATIN [Suspect]
     Indication: LUNG NEOPLASM MALIGNANT
     Route: 042
  2. NAVELBINE [Suspect]
     Indication: LUNG NEOPLASM MALIGNANT
     Route: 042
  3. MAXIPIME [Suspect]
     Indication: FEBRILE NEUTROPENIA
     Route: 042
     Dates: start: 20050426, end: 20050506
  4. BAKTAR [Concomitant]
     Route: 048
     Dates: start: 20050426, end: 20050502
  5. FUNGIZONE [Concomitant]
     Route: 048
     Dates: start: 20050426, end: 20050502
  6. NEUTROGIN [Concomitant]
     Route: 042
     Dates: start: 20050425, end: 20050501

REACTIONS (3)
  - FEBRILE NEUTROPENIA [None]
  - HYPONATRAEMIA [None]
  - PNEUMONIA [None]
